FAERS Safety Report 7240921-8 (Version None)
Quarter: 2011Q1

REPORT INFORMATION
  Report Type: 
  Country: None (occurrence: None)
  Receive Date: 20110124
  Receipt Date: 20110112
  Transmission Date: 20110831
  Serious: Yes (Hospitalization)
  Sender: FDA-Public Use
  Company Number: PHFR2011GB00652

PATIENT
  Sex: Female

DRUGS (1)
  1. CLOZARIL [Suspect]
     Indication: SCHIZOPHRENIA
     Dosage: UNK
     Route: 048
     Dates: start: 20020524

REACTIONS (8)
  - SKIN LESION [None]
  - WHITE BLOOD CELL COUNT INCREASED [None]
  - SOMNOLENCE [None]
  - URINARY TRACT INFECTION [None]
  - CONFUSIONAL STATE [None]
  - CARDIAC FAILURE [None]
  - CREPITATIONS [None]
  - OEDEMA PERIPHERAL [None]
